FAERS Safety Report 16929806 (Version 1)
Quarter: 2019Q4

REPORT INFORMATION
  Report Type: Spontaneous
  Country: US (occurrence: US)
  Receive Date: 20191017
  Receipt Date: 20191017
  Transmission Date: 20200122
  Serious: No
  Sender: FDA-Public Use
  Company Number: None

PATIENT
  Age: 49 Year
  Sex: Female
  Weight: 72.9 kg

DRUGS (6)
  1. GUANFACINE. [Suspect]
     Active Substance: GUANFACINE
     Indication: ANXIETY
     Dosage: ?          QUANTITY:30 TABLET(S);?
     Route: 048
     Dates: start: 20191005, end: 20191017
  2. PROGESTERONE. [Concomitant]
     Active Substance: PROGESTERONE
  3. GUANFACINE. [Suspect]
     Active Substance: GUANFACINE
     Indication: ATTENTION DEFICIT/HYPERACTIVITY DISORDER
     Dosage: ?          QUANTITY:30 TABLET(S);?
     Route: 048
     Dates: start: 20191005, end: 20191017
  4. FISH OIL [Concomitant]
     Active Substance: FISH OIL
  5. VITAMIN D [Concomitant]
     Active Substance: VITAMIN D NOS
  6. TESTOSTERONE. [Concomitant]
     Active Substance: TESTOSTERONE

REACTIONS (1)
  - Weight increased [None]

NARRATIVE: CASE EVENT DATE: 20191017
